FAERS Safety Report 9503282 (Version 2)
Quarter: 2020Q3

REPORT INFORMATION
  Report Type: Spontaneous
  Country: GB (occurrence: GB)
  Receive Date: 20130906
  Receipt Date: 20130906
  Transmission Date: 20201105
  Serious: Yes (Hospitalization)
  Sender: FDA-Public Use
  Company Number: GB-TEVA-427536ISR

PATIENT
  Sex: Female

DRUGS (2)
  1. IBANDRONIC ACID. [Suspect]
     Active Substance: IBANDRONIC ACID
     Indication: OSTEOPOROSIS
     Dosage: ONCE ?^6 MONTLY TYPE^ (JULY OR AGUST 2011)
     Route: 042
     Dates: start: 2011
  2. ALENDRONIC ACID [Suspect]
     Active Substance: ALENDRONIC ACID
     Indication: OSTEOPOROSIS
     Route: 048
     Dates: start: 2011, end: 2011

REACTIONS (12)
  - Hypersensitivity [Not Recovered/Not Resolved]
  - Feeling abnormal [Not Recovered/Not Resolved]
  - Back pain [Not Recovered/Not Resolved]
  - Dysaesthesia [Not Recovered/Not Resolved]
  - Diarrhoea [Not Recovered/Not Resolved]
  - Dysphagia [Not Recovered/Not Resolved]
  - Rash [Not Recovered/Not Resolved]
  - Paraesthesia [Not Recovered/Not Resolved]
  - Palpitations [Not Recovered/Not Resolved]
  - Herpes zoster [Not Recovered/Not Resolved]
  - Malaise [Not Recovered/Not Resolved]
  - Disability [Not Recovered/Not Resolved]

NARRATIVE: CASE EVENT DATE: 2011
